FAERS Safety Report 9227994 (Version 1)
Quarter: 2013Q1

REPORT INFORMATION
  Report Type: Spontaneous
  Country: US (occurrence: None)
  Receive Date: 20121016
  Receipt Date: 20121016
  Transmission Date: 20140127
  Serious: Yes (Hospitalization)
  Sender: FDA-Public Use
  Company Number: 2012032803

PATIENT
  Age: 69 Year
  Sex: Female

DRUGS (6)
  1. PRIVIGEN (IMMUNE GLOBULIN INTRAVENOUS (HUMAN) 10% LIQUID) [Suspect]
     Indication: IMMUNODEFICIENCY COMMON VARIABLE
     Dosage: WEEK 1 AND  4 OF HOSPITALIZATION (JUN-2012) INTRAVENOUS
  2. HIZENTRA (IMMUNOGLOBULIN HUMAN NORMAL) [Suspect]
     Indication: IMMUNODEFICIENCY COMMON VARIABLE
     Dosage: 1X/WEEK, 2ND AND 3RD WEEK OF HOSPITALIZATION. TILL JUN-2012
     Route: 058
  3. ANTIBIOTICS (ANTIBIOTICS) [Concomitant]
  4. VORICONAZOLE (VORICONAZOLE) [Concomitant]
  5. LEVAQUIN (LEVOFLOXACIN) [Concomitant]
  6. PREDNISONE (PREDNISONE) [Concomitant]

REACTIONS (6)
  - Pulmonary embolism [None]
  - Respiratory distress [None]
  - Dyspnoea [None]
  - Nausea [None]
  - Malaise [None]
  - Diarrhoea [None]
